FAERS Safety Report 9088425 (Version 1)
Quarter: 2013Q1

REPORT INFORMATION
  Report Type: Report from Study
  Country: US (occurrence: US)
  Receive Date: 20130201
  Receipt Date: 20130201
  Transmission Date: 20140127
  Serious: No
  Sender: FDA-Public Use
  Company Number: US-ABBOTT-12P-163-1026925-00

PATIENT
  Age: 48 Year
  Sex: Female

DRUGS (8)
  1. HUMIRA [Suspect]
     Indication: CROHN^S DISEASE
     Dates: start: 201007, end: 2011
  2. HUMIRA [Suspect]
     Dates: start: 2011
  3. CYMBALTA [Concomitant]
     Indication: NEUROPATHY PERIPHERAL
  4. CLORAZEPATE [Concomitant]
     Indication: HEADACHE
     Dosage: 7.5 MG, 1/2 TAB, TWICE DAILY
  5. TRIAMTERENE [Concomitant]
     Indication: BLOOD PRESSURE
     Dosage: DAILY
  6. CIPRO [Concomitant]
     Indication: INFECTION PROPHYLAXIS
     Dosage: 250 MG, 1 TWICE DAILY
  7. GABAPENTIN [Concomitant]
     Indication: CONVULSION
  8. MACROBID [Concomitant]
     Indication: INFECTION PROPHYLAXIS

REACTIONS (3)
  - Diabetes mellitus [Unknown]
  - Hypercholesterolaemia [Unknown]
  - Drug ineffective [Recovering/Resolving]
